FAERS Safety Report 8008725-6 (Version None)
Quarter: 2011Q4

REPORT INFORMATION
  Report Type: 
  Country: None (occurrence: None)
  Receive Date: 20111227
  Receipt Date: 20111219
  Transmission Date: 20120403
  Serious: Yes (Life-Threatening, Hospitalization, Disabling, Other)
  Sender: FDA-Public Use
  Company Number: GB-TEVA-310384ISR

PATIENT
  Age: 66 Year
  Sex: Male

DRUGS (8)
  1. ERYTHROMYCIN [Suspect]
     Indication: WOUND INFECTION
     Dosage: 1000 MILLIGRAM;
     Route: 048
     Dates: start: 20110524, end: 20110602
  2. PREDNISOLONE [Concomitant]
  3. ALLOPURINOL [Concomitant]
  4. METHOTREXATE [Suspect]
     Indication: RHEUMATOID ARTHRITIS
     Route: 048
     Dates: end: 20110516
  5. LEFLUNOMIDE [Suspect]
     Indication: SERONEGATIVE ARTHRITIS
     Dosage: 10 MILLIGRAM;
     Route: 048
     Dates: start: 20110427, end: 20110603
  6. DIHYDROCODEINE BITARTRATE INJ [Concomitant]
  7. AMITRIPTYLINE [Concomitant]
  8. ATENOLOL [Concomitant]

REACTIONS (12)
  - GENERAL PHYSICAL HEALTH DETERIORATION [None]
  - DELIRIUM [None]
  - LETHARGY [None]
  - RENAL FAILURE ACUTE [None]
  - HEPATIC FAILURE [None]
  - RESPIRATORY FAILURE [None]
  - COAGULOPATHY [None]
  - VASCULITIC RASH [None]
  - DYSPNOEA [None]
  - INFARCTION [None]
  - ERYTHEMA MULTIFORME [None]
  - HEPATIC FUNCTION ABNORMAL [None]
